FAERS Safety Report 11562075 (Version 1)
Quarter: 2015Q3

REPORT INFORMATION
  Report Type: Spontaneous
  Country: JP (occurrence: JP)
  Receive Date: 20150928
  Receipt Date: 20150928
  Transmission Date: 20151125
  Serious: Yes (Hospitalization)
  Sender: FDA-Public Use
  Company Number: PHHY2015JP104062

PATIENT
  Sex: Male

DRUGS (2)
  1. RIVASTACH [Suspect]
     Active Substance: RIVASTIGMINE
     Dosage: 4.6 MG/24HOURS (PATCH 5 CM2, 09 MG DAILY RIVASTIGMINE BASE) CUT INTO HALVES
     Route: 062
  2. RIVASTACH [Suspect]
     Active Substance: RIVASTIGMINE
     Indication: DEMENTIA ALZHEIMER^S TYPE
     Dosage: 4.6 MG/24HOURS (PATCH 5 CM2, 09 MG DAILY RIVASTIGMINE BASE)
     Route: 062

REACTIONS (2)
  - Large intestinal polypectomy [Unknown]
  - Wrong technique in product usage process [Unknown]
